FAERS Safety Report 8449371-X (Version None)
Quarter: 2012Q2

REPORT INFORMATION
  Report Type: 
  Country: None (occurrence: None)
  Receive Date: 20120619
  Receipt Date: 20120612
  Transmission Date: 20120825
  Serious: Yes (Death, Hospitalization, Other)
  Sender: FDA-Public Use
  Company Number: FR-ROCHE-1078024

PATIENT
  Age: 24 Year
  Sex: Female

DRUGS (2)
  1. ISOTRETINOIN [Suspect]
     Indication: ACNE
     Dates: start: 20050101
  2. ISOTRETINOIN [Suspect]
     Dates: start: 20080401

REACTIONS (7)
  - DISTURBANCE IN ATTENTION [None]
  - COMPLETED SUICIDE [None]
  - SUICIDE ATTEMPT [None]
  - MOROSE [None]
  - SCHIZOPHRENIA [None]
  - ARTHRALGIA [None]
  - VISUAL ACUITY REDUCED [None]
